FAERS Safety Report 7760574-X (Version None)
Quarter: 2011Q3

REPORT INFORMATION
  Report Type: 
  Country: None (occurrence: None)
  Receive Date: 20110919
  Receipt Date: 20110912
  Transmission Date: 20111222
  Serious: Yes (Other)
  Sender: FDA-Public Use
  Company Number: IT-ACTELION-A-CH2011-53879

PATIENT
  Age: 72 Year
  Sex: Female
  Weight: 59 kg

DRUGS (3)
  1. ZAVESCA [Suspect]
     Dosage: 100 MG, BID
     Route: 048
     Dates: start: 20050714, end: 20070509
  2. ZAVESCA [Suspect]
     Dosage: 100 MG, OD
     Route: 048
     Dates: start: 20050526, end: 20050713
  3. ZAVESCA [Suspect]
     Indication: GAUCHER'S DISEASE
     Dosage: 200 MG, BID
     Route: 048
     Dates: start: 20070510

REACTIONS (1)
  - HEPATIC NEOPLASM MALIGNANT [None]
